FAERS Safety Report 4356149-5 (Version None)
Quarter: 2004Q2

REPORT INFORMATION
  Report Type: 
  Country: None (occurrence: None)
  Receive Date: 20040506
  Receipt Date: 20040427
  Transmission Date: 20050107
  Serious: Yes (Other)
  Sender: FDA-Public Use
  Company Number: 2004211388GB

PATIENT

DRUGS (1)
  1. CABERGOLINE [Suspect]
     Dosage: 4MG/DAY, ORAL
     Route: 048

REACTIONS (2)
  - CARDIOMEGALY [None]
  - CHEST PAIN [None]
